FAERS Safety Report 21349955 (Version 1)
Quarter: 2022Q3

REPORT INFORMATION
  Report Type: Spontaneous
  Country: US (occurrence: None)
  Receive Date: 20220917
  Receipt Date: 20220917
  Transmission Date: 20221027
  Serious: Yes (Life-Threatening, Hospitalization, Disabling)
  Sender: FDA-Public Use
  Company Number: None

PATIENT
  Age: 50 Year
  Sex: Female
  Weight: 63 kg

DRUGS (1)
  1. MAGNESIUM CITRATE LEMON [Suspect]
     Active Substance: MAGNESIUM CITRATE
     Indication: Bowel preparation
     Dosage: OTHER QUANTITY : 10 OUNCE(S);?OTHER FREQUENCY : ONCE FOR SURGERY;?
     Route: 048
     Dates: start: 20201221, end: 20201222

REACTIONS (9)
  - Recalled product administered [None]
  - Product contamination microbial [None]
  - Ileus paralytic [None]
  - Pain [None]
  - Diarrhoea [None]
  - Dehydration [None]
  - Malabsorption [None]
  - Malnutrition [None]
  - General physical health deterioration [None]

NARRATIVE: CASE EVENT DATE: 20201222
